FAERS Safety Report 9995653 (Version 1)
Quarter: 2014Q1

REPORT INFORMATION
  Report Type: Spontaneous
  Country: US (occurrence: None)
  Receive Date: 20140304
  Receipt Date: 20140304
  Transmission Date: 20141002
  Serious: Yes (Other)
  Sender: FDA-Public Use
  Company Number: RB-60238-2013

PATIENT
  Sex: Male

DRUGS (4)
  1. BUPRENORPHINE (NONE) [Suspect]
     Indication: DRUG DEPENDENCE
     Dosage: (THE NEONATE^S MOTHER WAS TAKING 8 - 10 MG DAILY TRANSPLACENTAL)?
     Route: 064
     Dates: start: 2013, end: 20131022
  2. LEVETIRACETAM [Concomitant]
  3. ONDANSETRON [Concomitant]
  4. PRENATAL VITAMINS [Concomitant]

REACTIONS (3)
  - Foetal exposure during pregnancy [None]
  - Exposure during breast feeding [None]
  - Drug withdrawal syndrome neonatal [None]
